FAERS Safety Report 4852760-3 (Version None)
Quarter: 2005Q4

REPORT INFORMATION
  Report Type: 
  Country: None (occurrence: None)
  Receive Date: 20051125
  Receipt Date: 20050223
  Transmission Date: 20060501
  Serious: Yes (Other)
  Sender: FDA-Public Use
  Company Number: HQWYE560424FEB05

PATIENT

DRUGS (1)
  1. ZOSYN [Suspect]
     Dosage: INTRAVENOUS
     Route: 042

REACTIONS (1)
  - CLOSTRIDIAL INFECTION [None]
